FAERS Safety Report 18681086 (Version 2)
Quarter: 2021Q4

REPORT INFORMATION
  Report Type: Report from Study
  Country: US (occurrence: US)
  Receive Date: 20201229
  Receipt Date: 20211229
  Transmission Date: 20220303
  Serious: No
  Sender: FDA-Public Use
  Company Number: US-CLOVIS ONCOLOGY-CLO-2020-002060

PATIENT
  Sex: Female

DRUGS (3)
  1. RUBRACA [Suspect]
     Active Substance: RUCAPARIB CAMSYLATE
     Indication: Ovarian cancer
     Dosage: 500 MG, BID
     Route: 048
     Dates: start: 20201012
  2. RUBRACA [Suspect]
     Active Substance: RUCAPARIB CAMSYLATE
     Dosage: 600 MILLIGRAM, BID
     Route: 048
     Dates: start: 20201013, end: 202102
  3. AVASTIN                            /01555201/ [Concomitant]
     Indication: Product used for unknown indication
     Dosage: EVERY 3 WEEKS

REACTIONS (6)
  - Balance disorder [Unknown]
  - Tremor [Not Recovered/Not Resolved]
  - Red blood cell count abnormal [Unknown]
  - White blood cell count abnormal [Unknown]
  - Hypoaesthesia [Unknown]
  - Fatigue [Not Recovered/Not Resolved]

NARRATIVE: CASE EVENT DATE: 20200101
